FAERS Safety Report 4314900-4 (Version None)
Quarter: 2004Q1

REPORT INFORMATION
  Report Type: 
  Country: None (occurrence: None)
  Receive Date: 20040310
  Receipt Date: 20040310
  Transmission Date: 20041129
  Serious: No
  Sender: FDA-Public Use
  Company Number: None

PATIENT
  Age: 41 Year
  Sex: Male

DRUGS (4)
  1. QUETIAPINE 100 MG ASTRAZENECA PHARMACEUTICALS [Suspect]
     Indication: BIPOLAR DISORDER
     Dosage: 700 MG QD ORAL
     Route: 048
     Dates: start: 20030110, end: 20040309
  2. QUETIAPINE 100 MG ASTRAZENECA PHARMACEUTICALS [Suspect]
     Indication: SCHIZOAFFECTIVE DISORDER
     Dosage: 700 MG QD ORAL
     Route: 048
     Dates: start: 20030110, end: 20040309
  3. XANAX [Concomitant]
  4. CELEXA [Concomitant]

REACTIONS (1)
  - DIABETES MELLITUS NON-INSULIN-DEPENDENT [None]
